FAERS Safety Report 8017737-8 (Version None)
Quarter: 2011Q4

REPORT INFORMATION
  Report Type: 
  Country: None (occurrence: None)
  Receive Date: 20111229
  Receipt Date: 20111229
  Transmission Date: 20120403
  Serious: Yes (Death)
  Sender: FDA-Public Use
  Company Number: None

PATIENT
  Sex: Female
  Weight: 54.1 kg

DRUGS (2)
  1. CABAZITAXEL 14 MG SANOFI-AVENTIS [Suspect]
     Indication: LUNG NEOPLASM MALIGNANT
     Dosage: CABAZITAXEL 14 MG WEEKLY IV
     Route: 042
     Dates: start: 20111214
  2. CABAZITAXEL 14 MG SANOFI-AVENTIS [Suspect]
     Indication: LUNG NEOPLASM MALIGNANT
     Dosage: CABAZITAXEL 14 MG WEEKLY IV
     Route: 042
     Dates: start: 20111221

REACTIONS (1)
  - DEATH [None]
